FAERS Safety Report 24972767 (Version 2)
Quarter: 2025Q2

REPORT INFORMATION
  Report Type: Spontaneous
  Country: AU (occurrence: AU)
  Receive Date: 20250215
  Receipt Date: 20250416
  Transmission Date: 20250717
  Serious: Yes (Life-Threatening, Other)
  Sender: CELLTRION
  Company Number: AU-PFIZER INC-202500030177

PATIENT

DRUGS (1)
  1. INFLECTRA [Suspect]
     Active Substance: INFLIXIMAB-DYYB
     Indication: Crohn^s disease

REACTIONS (3)
  - Colitis ulcerative [Unknown]
  - Drug level below therapeutic [Unknown]
  - Off label use [Unknown]
